FAERS Safety Report 8903966 (Version 3)
Quarter: 2012Q4

REPORT INFORMATION
  Report Type: 
  Country: US (occurrence: US)
  Receive Date: 20121112
  Receipt Date: 20121221
  Transmission Date: 20130627
  Serious: Yes (Other)
  Sender: FDA-Public Use
  Company Number: US-JNJFOC-20121102730

PATIENT
  Sex: Male
  Weight: 126.1 kg

DRUGS (2)
  1. REMICADE [Suspect]
     Indication: CROHN^S DISEASE
     Route: 042
     Dates: start: 20121026
  2. REMICADE [Suspect]
     Indication: CROHN^S DISEASE
     Dosage: the patientwas on maintenance infusions of about 8 weeks
     Route: 042
     Dates: start: 20110415

REACTIONS (1)
  - Atrial fibrillation [Unknown]
